FAERS Safety Report 15814814 (Version 1)
Quarter: 2019Q1

REPORT INFORMATION
  Report Type: Spontaneous
  Country: US (occurrence: US)
  Receive Date: 20190111
  Receipt Date: 20190111
  Transmission Date: 20190417
  Serious: Yes (Death)
  Sender: FDA-Public Use
  Company Number: US-INSYS THERAPEUTICS, INC-INS201901-000017

PATIENT
  Age: 26 Year
  Sex: Male

DRUGS (10)
  1. COCAINE [Suspect]
     Active Substance: COCAINE
  2. FENTANYL. [Suspect]
     Active Substance: FENTANYL
     Indication: PRODUCT USED FOR UNKNOWN INDICATION
  3. NORFENTANYL [Suspect]
     Active Substance: NORFENTANYL
  4. METHADONE [Suspect]
     Active Substance: METHADONE HYDROCHLORIDE
  5. CYCLOPROPYLFENTANYL [Suspect]
     Active Substance: CYCLOPROPYLFENTANYL
  6. FURANYLFENTANYL [Suspect]
     Active Substance: FURANYLFENTANYL
  7. DRONABINOL. [Suspect]
     Active Substance: DRONABINOL
     Indication: PRODUCT USED FOR UNKNOWN INDICATION
  8. BENZOYLECGONINE [Suspect]
     Active Substance: BENZOYLECGONINE
  9. 2-ETHYLIDENE-1,5-DIMETHYL-3,3-DIPHENYLPYRROLIDINE [Suspect]
     Active Substance: METHADONE HYDROCHLORIDE
  10. DELTA-9 CARBOXY THC [Suspect]
     Active Substance: DELTA(9)-TETRAHYDROCANNABINOLIC ACID

REACTIONS (1)
  - Death [Fatal]
